FAERS Safety Report 4347320-7 (Version None)
Quarter: 2004Q1

REPORT INFORMATION
  Report Type: 
  Country: None (occurrence: None)
  Receive Date: 20040329
  Receipt Date: 20040206
  Transmission Date: 20041129
  Serious: No
  Sender: FDA-Public Use
  Company Number: USA040258781

PATIENT
  Age: 52 Year
  Sex: Male

DRUGS (2)
  1. STRATTERA [Suspect]
     Indication: ATTENTION DEFICIT/HYPERACTIVITY DISORDER
     Dosage: 60 MG/DAY
     Dates: start: 20040126, end: 20040204
  2. PRAVACHOL [Concomitant]

REACTIONS (4)
  - DYSURIA [None]
  - POLLAKIURIA [None]
  - RESIDUAL URINE VOLUME [None]
  - URINARY INCONTINENCE [None]
